FAERS Safety Report 9269059 (Version 1)
Quarter: 2013Q2

REPORT INFORMATION
  Report Type: Spontaneous
  Country: US (occurrence: US)
  Receive Date: 20130503
  Receipt Date: 20130503
  Transmission Date: 20140414
  Serious: Yes (Hospitalization)
  Sender: FDA-Public Use
  Company Number: US-ROCHE-1220914

PATIENT
  Age: 62 Year
  Sex: Female

DRUGS (3)
  1. BONIVA [Suspect]
     Indication: OSTEOPOROSIS
     Route: 048
     Dates: end: 20130301
  2. LYRICA [Concomitant]
     Indication: NEUROPATHY PERIPHERAL
     Route: 065
  3. ZOLOFT [Concomitant]
     Indication: DEPRESSION
     Route: 065

REACTIONS (3)
  - Hip fracture [Not Recovered/Not Resolved]
  - Gastritis [Unknown]
  - Fall [Unknown]
